FAERS Safety Report 6480915-3 (Version None)
Quarter: 2009Q4

REPORT INFORMATION
  Report Type: 
  Country: None (occurrence: None)
  Receive Date: 20091208
  Receipt Date: 20091126
  Transmission Date: 20100525
  Serious: Yes (Hospitalization)
  Sender: FDA-Public Use
  Company Number: PHHY2009JP48087

PATIENT
  Sex: Male
  Weight: 35 kg

DRUGS (5)
  1. TEGRETOL [Suspect]
     Indication: PARTIAL SEIZURES
     Dosage: 200 MG DAILY
     Route: 048
     Dates: start: 20080829, end: 20080904
  2. TEGRETOL [Suspect]
     Dosage: 400 MG DAILY
     Route: 048
     Dates: start: 20080905, end: 20080909
  3. EXCEGRAN [Suspect]
     Indication: PARTIAL SEIZURES
     Dosage: 200 MG DAILY
     Route: 048
     Dates: start: 20080907, end: 20090603
  4. DORMICUM [Suspect]
     Indication: PARTIAL SEIZURES
     Dosage: 10 MG DAILY
     Route: 042
     Dates: start: 20080820, end: 20080904
  5. ZOVIRAX [Concomitant]
     Indication: ENCEPHALITIS
     Dosage: 1050 MG
     Route: 042
     Dates: start: 20080821, end: 20080903

REACTIONS (8)
  - AGGRESSION [None]
  - ALTERED STATE OF CONSCIOUSNESS [None]
  - CONVULSION [None]
  - FEELING ABNORMAL [None]
  - MYOCLONUS [None]
  - PERSONALITY CHANGE [None]
  - RESTLESSNESS [None]
  - STATUS EPILEPTICUS [None]
